FAERS Safety Report 15584326 (Version 1)
Quarter: 2018Q4

REPORT INFORMATION
  Report Type: Spontaneous
  Country: US (occurrence: US)
  Receive Date: 20181031
  Receipt Date: 20181031
  Transmission Date: 20190205
  Serious: No
  Sender: FDA-Public Use
  Company Number: None

PATIENT
  Sex: Female
  Weight: 78 kg

DRUGS (5)
  1. HYDROCORTISON [Concomitant]
     Active Substance: HYDROCORTISONE
  2. LOSARTAN. [Suspect]
     Active Substance: LOSARTAN
  3. HYDROCHLOROTHIAZIDE. [Concomitant]
     Active Substance: HYDROCHLOROTHIAZIDE
  4. METFORMIN [Suspect]
     Active Substance: METFORMIN HYDROCHLORIDE
  5. OMEPRAZOLE. [Concomitant]
     Active Substance: OMEPRAZOLE

REACTIONS (5)
  - Urinary tract disorder [None]
  - Peripheral swelling [None]
  - Gastric disorder [None]
  - Respiration abnormal [None]
  - Dysgeusia [None]
